FAERS Safety Report 14262210 (Version 1)
Quarter: 2017Q4

REPORT INFORMATION
  Report Type: Report from Study
  Country: US (occurrence: US)
  Receive Date: 20171208
  Receipt Date: 20171208
  Transmission Date: 20180321
  Serious: No
  Sender: FDA-Public Use
  Company Number: US-KYOWAKIRIN-2017BKK000428

PATIENT

DRUGS (2)
  1. GRANISETRON [Suspect]
     Active Substance: GRANISETRON
     Dosage: UNKNOWN
     Route: 061
     Dates: start: 2016, end: 2016
  2. GRANISETRON [Suspect]
     Active Substance: GRANISETRON
     Indication: PROPHYLAXIS OF NAUSEA AND VOMITING
     Dosage: 2 DF, UNK
     Route: 061
     Dates: start: 20170212

REACTIONS (5)
  - Product adhesion issue [Recovered/Resolved]
  - Incorrect dose administered [Recovered/Resolved]
  - Intentional product misuse [Recovered/Resolved]
  - Product dosage form issue [Recovered/Resolved]
  - Wrong technique in product usage process [None]

NARRATIVE: CASE EVENT DATE: 201702
